FAERS Safety Report 11165561 (Version 1)
Quarter: 2015Q2

REPORT INFORMATION
  Report Type: Spontaneous
  Country: SE (occurrence: SE)
  Receive Date: 20150604
  Receipt Date: 20150604
  Transmission Date: 20150821
  Serious: Yes (Death, Hospitalization)
  Sender: FDA-Public Use
  Company Number: SE-JNJFOC-20150521435

PATIENT
  Age: 83 Year
  Sex: Female

DRUGS (13)
  1. ATORVASTATIN [Concomitant]
     Active Substance: ATORVASTATIN
     Route: 065
  2. LEVAXIN [Concomitant]
     Active Substance: LEVOTHYROXINE SODIUM
     Route: 065
  3. NOVORAPID [Concomitant]
     Active Substance: INSULIN ASPART
     Route: 065
  4. WARAN [Concomitant]
     Active Substance: WARFARIN SODIUM
     Route: 065
  5. SOBRIL [Concomitant]
     Active Substance: OXAZEPAM
     Route: 065
  6. PREDNISOLON [Concomitant]
     Active Substance: PREDNISOLONE
     Indication: COLITIS ULCERATIVE
     Route: 065
  7. TAFLOTAN [Concomitant]
     Active Substance: TAFLUPROST
     Dosage: SOLUTION IN SINGLE-DOSE CONTAINER
     Route: 047
  8. PANODIL [Concomitant]
     Active Substance: ACETAMINOPHEN
     Route: 065
  9. BRICANYL [Concomitant]
     Active Substance: TERBUTALINE SULFATE
     Route: 065
  10. CITALOPRAM [Concomitant]
     Active Substance: CITALOPRAM HYDROBROMIDE
     Route: 065
  11. REMICADE [Suspect]
     Active Substance: INFLIXIMAB
     Indication: COLITIS ULCERATIVE
     Dosage: 100 MG
     Route: 042
     Dates: start: 20130128
  12. PAPAVERIN [Concomitant]
     Route: 065
  13. REMICADE [Suspect]
     Active Substance: INFLIXIMAB
     Indication: COLITIS ULCERATIVE
     Dosage: 100 MG
     Route: 042
     Dates: start: 201505, end: 201505

REACTIONS (2)
  - Intervertebral discitis [Unknown]
  - Staphylococcal sepsis [Fatal]

NARRATIVE: CASE EVENT DATE: 201505
